FAERS Safety Report 6924046-4 (Version None)
Quarter: 2010Q3

REPORT INFORMATION
  Report Type: 
  Country: None (occurrence: None)
  Receive Date: 20100813
  Receipt Date: 20100806
  Transmission Date: 20110219
  Serious: Yes (Other)
  Sender: FDA-Public Use
  Company Number: US-GENENTECH-304820

PATIENT
  Sex: Female

DRUGS (9)
  1. XOLAIR [Suspect]
     Indication: ASTHMA
     Dosage: 150 MG, UNK
     Route: 058
     Dates: start: 20100708
  2. PREDNISONE [Concomitant]
     Indication: PRODUCT USED FOR UNKNOWN INDICATION
  3. ASPIRIN [Concomitant]
     Indication: PRODUCT USED FOR UNKNOWN INDICATION
     Dosage: 81 UNK, UNK
  4. BLOOD PRESSURE MEDICATIONS NOS [Concomitant]
  5. ISOSORBIDE [Concomitant]
     Indication: PRODUCT USED FOR UNKNOWN INDICATION
  6. ADVAIR DISKUS 100/50 [Concomitant]
     Indication: PRODUCT USED FOR UNKNOWN INDICATION
  7. ALBUTEROL/ALBUTEROL SULFATE/IPRATROPIUM BROMI [Concomitant]
     Indication: PRODUCT USED FOR UNKNOWN INDICATION
  8. SINGULAIR [Concomitant]
     Indication: PRODUCT USED FOR UNKNOWN INDICATION
  9. NEXIUM [Concomitant]
     Indication: PRODUCT USED FOR UNKNOWN INDICATION

REACTIONS (1)
  - CEREBROVASCULAR ACCIDENT [None]
